FAERS Safety Report 18936912 (Version 2)
Quarter: 2021Q1

REPORT INFORMATION
  Report Type: Spontaneous
  Country: PT (occurrence: PT)
  Receive Date: 20210224
  Receipt Date: 20210303
  Transmission Date: 20210420
  Serious: No
  Sender: FDA-Public Use
  Company Number: PT-UCBSA-2021008032

PATIENT
  Age: 76 Year
  Sex: Female
  Weight: 48 kg

DRUGS (6)
  1. TRANXEN [Concomitant]
     Active Substance: CLORAZEPATE DIPOTASSIUM
     Indication: SLEEP DISORDER
     Dosage: 10 MILLIGRAM, UNK
  2. VITAMIN D [VITAMIN D NOS] [Concomitant]
     Active Substance: VITAMIN D NOS
     Indication: PRODUCT USED FOR UNKNOWN INDICATION
     Dosage: 1 UNK, MONTHLY (QM)
  3. VALDISPERT [Concomitant]
     Active Substance: HERBALS
     Indication: INSOMNIA
     Dosage: 1.9 MG
  4. KEPPRA [Suspect]
     Active Substance: LEVETIRACETAM
     Indication: EPILEPSY
     Dosage: 500 MILLIGRAM, 2X/DAY (BID)
     Route: 048
  5. MAGNESIUM [Suspect]
     Active Substance: MAGNESIUM
     Indication: ARRHYTHMIA
     Dosage: UNK, 3X/DAY (TID)
  6. VALERIANA OFFICINALIS EXTRACT [Concomitant]
     Active Substance: VALERIAN
     Indication: SLEEP DISORDER
     Dosage: 1.9 MILLIGRAM, UNK

REACTIONS (3)
  - Insomnia [Not Recovered/Not Resolved]
  - Diarrhoea [Unknown]
  - Anxiety [Recovering/Resolving]
